FAERS Safety Report 25223979 (Version 2)
Quarter: 2025Q2

REPORT INFORMATION
  Report Type: Report from Study
  Country: US (occurrence: US)
  Receive Date: 20250422
  Receipt Date: 20250528
  Transmission Date: 20250717
  Serious: Yes (Hospitalization, Other)
  Sender: TAKEDA
  Company Number: US-TAKEDA-2025TUS038712

PATIENT
  Sex: Female

DRUGS (5)
  1. HUMAN IMMUNOGLOBULIN G [Suspect]
     Active Substance: HUMAN IMMUNOGLOBULIN G
     Indication: Primary immunodeficiency syndrome
  2. HUMAN IMMUNOGLOBULIN G [Suspect]
     Active Substance: HUMAN IMMUNOGLOBULIN G
     Indication: Immunodeficiency common variable
     Dosage: 25 GRAM, MONTHLY
  3. HUMAN IMMUNOGLOBULIN G [Suspect]
     Active Substance: HUMAN IMMUNOGLOBULIN G
  4. COVID-19 VACCINE NOS [Suspect]
     Active Substance: COVID-19 VACCINE
     Indication: COVID-19 immunisation
  5. IRON [Suspect]
     Active Substance: IRON
     Indication: Product used for unknown indication

REACTIONS (30)
  - Syncope [Unknown]
  - Brain neoplasm malignant [Recovered/Resolved]
  - Road traffic accident [Unknown]
  - Seizure [Unknown]
  - Cerebrovascular accident [Unknown]
  - Dizziness [Unknown]
  - Contusion [Unknown]
  - Respiratory tract congestion [Unknown]
  - Inappropriate schedule of product administration [Unknown]
  - Nasopharyngitis [Not Recovered/Not Resolved]
  - Insomnia [Unknown]
  - COVID-19 [Unknown]
  - Illness [Recovering/Resolving]
  - Multiple allergies [Not Recovered/Not Resolved]
  - Poor venous access [Unknown]
  - Immunisation reaction [Unknown]
  - Fall [Unknown]
  - Inability to afford medication [Unknown]
  - Face injury [Unknown]
  - Hypoacusis [Unknown]
  - Ovarian cyst [Unknown]
  - Energy increased [Unknown]
  - Post-traumatic neck syndrome [Unknown]
  - Product distribution issue [Unknown]
  - Poor quality sleep [Unknown]
  - Incorrect product administration duration [Unknown]
  - Pain [Not Recovered/Not Resolved]
  - Anaemia [Unknown]
  - Vomiting [Unknown]
  - Fatigue [Recovering/Resolving]
